FAERS Safety Report 10665216 (Version 3)
Quarter: 2015Q1

REPORT INFORMATION
  Report Type: Report from Study
  Country: US (occurrence: US)
  Receive Date: 20141219
  Receipt Date: 20150312
  Transmission Date: 20150720
  Serious: Yes (Other)
  Sender: FDA-Public Use
  Company Number: US-GILEAD-2014-0127866

PATIENT
  Age: 53 Year
  Sex: Female
  Weight: 65.3 kg

DRUGS (5)
  1. AMBRISENTAN [Suspect]
     Active Substance: AMBRISENTAN
     Indication: PRODUCT USED FOR UNKNOWN INDICATION
     Dosage: 10 MG, QD
     Route: 065
     Dates: start: 20140110
  2. REMODULIN [Suspect]
     Active Substance: TREPROSTINIL
     Dosage: .028 ?G/KG, UNK
     Route: 058
     Dates: start: 20140919
  3. WARFARIN [Concomitant]
     Active Substance: WARFARIN
  4. REMODULIN [Suspect]
     Active Substance: TREPROSTINIL
     Indication: PULMONARY HYPERTENSION
     Dosage: .023 ?G/KG, UNK
     Route: 058
     Dates: start: 20140919
  5. REMODULIN [Suspect]
     Active Substance: TREPROSTINIL
     Dosage: .037 ?G/KG, UNK
     Route: 058
     Dates: start: 20141125

REACTIONS (8)
  - Transplant evaluation [Unknown]
  - Dyspnoea [Unknown]
  - Walking distance test abnormal [Unknown]
  - Wrong technique in drug usage process [Unknown]
  - Infusion site erythema [Recovering/Resolving]
  - Asthenia [Unknown]
  - Malaise [Unknown]
  - Administration site discharge [Recovering/Resolving]

NARRATIVE: CASE EVENT DATE: 2014
